FAERS Safety Report 18059476 (Version 1)
Quarter: 2020Q3

REPORT INFORMATION
  Report Type: Spontaneous
  Country: US (occurrence: US)
  Receive Date: 20200723
  Receipt Date: 20200723
  Transmission Date: 20201103
  Serious: No
  Sender: FDA-Public Use
  Company Number: US-PFIZER INC-2020021169

PATIENT
  Age: 79 Year
  Sex: Female
  Weight: 72 kg

DRUGS (11)
  1. LYRICA [Suspect]
     Active Substance: PREGABALIN
     Indication: RADICULOPATHY
     Dosage: 150 MG, 2X/DAY (EVERY 12 HOURS)
     Route: 048
     Dates: start: 20200212
  2. LYRICA [Suspect]
     Active Substance: PREGABALIN
     Indication: BACK PAIN
     Dosage: 150 MG, 1X/DAY [AT NIGHT]
     Route: 048
     Dates: end: 201904
  3. LYRICA [Suspect]
     Active Substance: PREGABALIN
     Indication: FIBROMYALGIA
  4. LEVOTHYROXINE. [Concomitant]
     Active Substance: LEVOTHYROXINE
     Indication: THYROID DISORDER
     Dosage: 50 UG, 1X/DAY
     Route: 048
  5. CRANBERRY. [Concomitant]
     Active Substance: CRANBERRY
     Indication: URINARY INCONTINENCE
     Dosage: 4200 MG, 1X/DAY
     Route: 048
     Dates: start: 2019
  6. LISINOPRIL. [Concomitant]
     Active Substance: LISINOPRIL
     Indication: BLOOD PRESSURE ABNORMAL
     Dosage: 10 MG, 1X/DAY
     Route: 048
  7. OMEPRAZOLE. [Concomitant]
     Active Substance: OMEPRAZOLE
     Indication: GASTRIC DISORDER
     Dosage: 20 MG, 1X/DAY
     Route: 048
  8. ASPIRIN [ACETYLSALICYLIC ACID] [Concomitant]
     Active Substance: ASPIRIN
     Dosage: 0.5 DF, 1X/DAY [1/2 TABLET BY MOUTH ONCE DAILY]
     Route: 048
  9. CRANBERRY. [Concomitant]
     Active Substance: CRANBERRY
     Dosage: UNK, 2X/DAY [TWO OF THE NATURE MADE, ONE GEL CAPSULE BY MOUTH IN THE MORNING AND AT NIGHT]
  10. TRAZODONE [Concomitant]
     Active Substance: TRAZODONE HYDROCHLORIDE
     Indication: SLEEP DISORDER
     Dosage: 50 MG, 1X/DAY (AT BEDTIME)
     Route: 048
     Dates: start: 2019
  11. CALCIUM [Concomitant]
     Active Substance: CALCIUM
     Indication: BONE DISORDER
     Dosage: UNK (SHE TOOK 10 OR LESS OF THOSE, SHE THOUGHT THEY WOULD HELP BONES, BUT SHE HADN^T TAKEN ANY SINCE

REACTIONS (1)
  - Confusional state [Unknown]
